FAERS Safety Report 26054352 (Version 2)
Quarter: 2025Q4

REPORT INFORMATION
  Report Type: Spontaneous
  Country: US (occurrence: US)
  Receive Date: 20251117
  Receipt Date: 20251124
  Transmission Date: 20260117
  Serious: Yes (Other)
  Sender: PFIZER
  Company Number: US-MLMSERVICE-20251103-PI697705-00128-1

PATIENT
  Age: 41 Year
  Sex: Female

DRUGS (7)
  1. ADRIAMYCIN [Suspect]
     Active Substance: DOXORUBICIN HYDROCHLORIDE
     Indication: Pulmonary artery intimal sarcoma
     Dosage: 60 MG/M2, CYCLIC
     Dates: start: 202006
  2. PACLITAXEL [Concomitant]
     Active Substance: PACLITAXEL
     Indication: Pulmonary artery intimal sarcoma
     Dosage: 80 MG/M2, WEEKLY (5 DOSES OF PACLITAXEL WERE RECEIVED)
     Dates: start: 202004
  3. HEPARIN [Concomitant]
     Active Substance: HEPARIN SODIUM
     Indication: Anticoagulant therapy
     Dosage: UNK
     Dates: start: 2019
  4. RIVAROXABAN [Concomitant]
     Active Substance: RIVAROXABAN
     Indication: Anticoagulant therapy
     Dosage: UNK
     Dates: start: 2019
  5. DEXRAZOXANE [Concomitant]
     Active Substance: DEXRAZOXANE
     Indication: Pulmonary artery intimal sarcoma
     Dosage: 600 MG/M2 (CYCLE 6 AND 7)
     Dates: start: 202011
  6. AMIODARONE [Concomitant]
     Active Substance: AMIODARONE
     Dosage: UNK
  7. METOPROLOL SUCCINATE [Concomitant]
     Active Substance: METOPROLOL SUCCINATE
     Dosage: UNK

REACTIONS (4)
  - Right ventricular failure [Unknown]
  - Left ventricular dysfunction [Unknown]
  - Atrioventricular block first degree [Unknown]
  - Bundle branch block right [Unknown]
